FAERS Safety Report 18899915 (Version 1)
Quarter: 2021Q1

REPORT INFORMATION
  Report Type: Report from Study
  Country: JP (occurrence: JP)
  Receive Date: 20210216
  Receipt Date: 20210216
  Transmission Date: 20210420
  Serious: No
  Sender: FDA-Public Use
  Company Number: JP-CELGENEUS-JPN-20210106904

PATIENT
  Age: 43 Year
  Sex: Male
  Weight: 64 kg

DRUGS (1)
  1. OZANIMOD. [Suspect]
     Active Substance: OZANIMOD
     Indication: COLITIS
     Dosage: 1 CAPSULE X 1 X 1 DAYS
     Route: 048
     Dates: start: 20201016, end: 20201019

REACTIONS (1)
  - COVID-19 [Recovered/Resolved with Sequelae]

NARRATIVE: CASE EVENT DATE: 20210124
